FAERS Safety Report 14140613 (Version 1)
Quarter: 2017Q4

REPORT INFORMATION
  Report Type: Spontaneous
  Country: US (occurrence: US)
  Receive Date: 20171027
  Receipt Date: 20171027
  Transmission Date: 20180321
  Serious: Yes (Disabling)
  Sender: FDA-Public Use
  Company Number: None

PATIENT
  Age: 62 Year
  Sex: Female
  Weight: 78.75 kg

DRUGS (15)
  1. BOTOX [Suspect]
     Active Substance: ONABOTULINUMTOXINA
     Indication: MIGRAINE
     Dosage: ?          OTHER FREQUENCY:EVERY 3 MONTHS;OTHER ROUTE:INJECTION INTO THE HEAD AND NECK?
     Dates: start: 20131019, end: 20171003
  2. VIVELLE-DOT [Concomitant]
     Active Substance: ESTRADIOL
  3. FLONASE [Concomitant]
     Active Substance: FLUTICASONE PROPIONATE
  4. IBUPROFEN. [Concomitant]
     Active Substance: IBUPROFEN
  5. VITAMIN B COMPLEX [Concomitant]
     Active Substance: CYANOCOBALAMIN\DEXPANTHENOL\NIACINAMIDE\PYRIDOXINE HYDROCHLORIDE\RIBOFLAVIN 5^-PHOSPHATE SODIUM\THIAMINE HYDROCHLORIDE\VITAMIN B COMPLEX
  6. CAMBIA [Concomitant]
     Active Substance: DICLOFENAC POTASSIUM
  7. TAZANADINE [Concomitant]
  8. SUMATRIPTAN. [Concomitant]
     Active Substance: SUMATRIPTAN
  9. MULTI VITAMIN [Concomitant]
     Active Substance: VITAMINS
  10. COQ10 [Concomitant]
     Active Substance: UBIDECARENONE
  11. FISH OIL [Concomitant]
     Active Substance: FISH OIL
  12. DULOXITENE [Concomitant]
     Active Substance: DULOXETINE
  13. CLARITIN [Concomitant]
     Active Substance: LORATADINE
  14. MG [Concomitant]
     Active Substance: MAGNESIUM
  15. LAMOTRIGINE. [Concomitant]
     Active Substance: LAMOTRIGINE

REACTIONS (3)
  - Cervicogenic headache [None]
  - Pain [None]
  - Quality of life decreased [None]

NARRATIVE: CASE EVENT DATE: 20161220
